FAERS Safety Report 11751881 (Version 1)
Quarter: 2015Q4

REPORT INFORMATION
  Report Type: Spontaneous
  Country: US (occurrence: US)
  Receive Date: 20151118
  Receipt Date: 20151118
  Transmission Date: 20160304
  Serious: No
  Sender: FDA-Public Use
  Company Number: US-AQUA-2014AQU000035

PATIENT
  Age: 76 Year
  Sex: Female
  Weight: 74.84 kg

DRUGS (10)
  1. PROPAFENONE. [Concomitant]
     Active Substance: PROPAFENONE
  2. HYZAAR /01284801/ [Concomitant]
  3. ALLOPURINOL. [Concomitant]
     Active Substance: ALLOPURINOL
  4. DIGOXIN. [Concomitant]
     Active Substance: DIGOXIN
  5. POTASSIUM [Concomitant]
     Active Substance: POTASSIUM
  6. ANTIHISTAMINES [Concomitant]
     Active Substance: ANTIHISTAMINES NOS
  7. TOPROL XL [Concomitant]
     Active Substance: METOPROLOL SUCCINATE
  8. VERDESO [Suspect]
     Active Substance: DESONIDE
     Indication: PRURITUS
     Route: 061
     Dates: start: 20141215, end: 20141215
  9. MULTIVITAMIN /06015201/ [Concomitant]
  10. FUROSEMIDE. [Concomitant]
     Active Substance: FUROSEMIDE

REACTIONS (3)
  - Pruritus [Not Recovered/Not Resolved]
  - Skin irritation [Not Recovered/Not Resolved]
  - Rash [Not Recovered/Not Resolved]

NARRATIVE: CASE EVENT DATE: 20141216
